FAERS Safety Report 6546365-6 (Version None)
Quarter: 2010Q1

REPORT INFORMATION
  Report Type: 
  Country: None (occurrence: None)
  Receive Date: 20100115
  Receipt Date: 20091228
  Transmission Date: 20100710
  Serious: No
  Sender: FDA-Public Use
  Company Number: 2009-00925

PATIENT

DRUGS (1)
  1. COLD REMEDY ORAL MIST [Suspect]

REACTIONS (1)
  - AGEUSIA [None]
